FAERS Safety Report 9002841 (Version 4)
Quarter: 2013Q1

REPORT INFORMATION
  Report Type: Spontaneous
  Country: US (occurrence: US)
  Receive Date: 20130108
  Receipt Date: 20130121
  Transmission Date: 20140127
  Serious: No
  Sender: FDA-Public Use
  Company Number: US-VERTEX PHARMACEUTICALS INC.-2013-000221

PATIENT
  Age: 60 Year
  Sex: Male
  Weight: 97 kg

DRUGS (9)
  1. INCIVEK [Suspect]
     Indication: HEPATITIS C
     Dosage: 750 MG, TID
     Route: 048
     Dates: start: 20130102
  2. RIBAVIRIN [Suspect]
     Indication: HEPATITIS C
     Dosage: 3 PILL AM, 2 PILL PM
     Route: 048
     Dates: start: 20130102
  3. PEGASYS [Suspect]
     Indication: HEPATITIS C
     Dosage: QW
     Route: 058
     Dates: start: 20130102
  4. TOPAMAX [Concomitant]
     Indication: CONVULSION
  5. TOPAMAX [Concomitant]
     Indication: MIGRAINE
  6. PEPCID                             /00706001/ [Concomitant]
  7. XIFAXAN [Concomitant]
     Indication: HEPATIC ENCEPHALOPATHY
  8. LACTULOSE [Concomitant]
     Indication: HEPATIC ENCEPHALOPATHY
  9. NEURONTIN [Concomitant]
     Indication: PAIN

REACTIONS (4)
  - Confusional state [Not Recovered/Not Resolved]
  - Rash erythematous [Not Recovered/Not Resolved]
  - Pruritus [Not Recovered/Not Resolved]
  - Nausea [Not Recovered/Not Resolved]
